FAERS Safety Report 19686932 (Version 6)
Quarter: 2021Q4

REPORT INFORMATION
  Report Type: Report from Study
  Country: DE (occurrence: DE)
  Receive Date: 20210811
  Receipt Date: 20211129
  Transmission Date: 20220303
  Serious: Yes (Hospitalization, Other)
  Sender: FDA-Public Use
  Company Number: DE-TAKEDA-2021TUS049638

PATIENT
  Age: 61 Year
  Sex: Female

DRUGS (21)
  1. TEDUGLUTIDE [Suspect]
     Active Substance: TEDUGLUTIDE
     Indication: Short-bowel syndrome
     Dosage: 3 MILLIGRAM, QD
     Route: 065
     Dates: start: 20201112, end: 20201208
  2. TEDUGLUTIDE [Suspect]
     Active Substance: TEDUGLUTIDE
     Indication: Short-bowel syndrome
     Dosage: 3 MILLIGRAM, QD
     Route: 065
     Dates: start: 20201112, end: 20201208
  3. TEDUGLUTIDE [Suspect]
     Active Substance: TEDUGLUTIDE
     Indication: Short-bowel syndrome
     Dosage: 3 MILLIGRAM, QD
     Route: 065
     Dates: start: 20201112, end: 20201208
  4. TEDUGLUTIDE [Suspect]
     Active Substance: TEDUGLUTIDE
     Indication: Short-bowel syndrome
     Dosage: 3 MILLIGRAM, QD
     Route: 065
     Dates: start: 20201112, end: 20201208
  5. TEDUGLUTIDE [Suspect]
     Active Substance: TEDUGLUTIDE
     Dosage: 2 MILLIGRAM, QD
     Route: 065
     Dates: start: 20201209, end: 20201215
  6. TEDUGLUTIDE [Suspect]
     Active Substance: TEDUGLUTIDE
     Dosage: 2 MILLIGRAM, QD
     Route: 065
     Dates: start: 20201209, end: 20201215
  7. TEDUGLUTIDE [Suspect]
     Active Substance: TEDUGLUTIDE
     Dosage: 2 MILLIGRAM, QD
     Route: 065
     Dates: start: 20201209, end: 20201215
  8. TEDUGLUTIDE [Suspect]
     Active Substance: TEDUGLUTIDE
     Dosage: 2 MILLIGRAM, QD
     Route: 065
     Dates: start: 20201209, end: 20201215
  9. TEDUGLUTIDE [Suspect]
     Active Substance: TEDUGLUTIDE
     Dosage: 2.4 MILLIGRAM, QD
     Route: 065
     Dates: start: 20201216, end: 20210922
  10. TEDUGLUTIDE [Suspect]
     Active Substance: TEDUGLUTIDE
     Dosage: 2.4 MILLIGRAM, QD
     Route: 065
     Dates: start: 20201216, end: 20210922
  11. TEDUGLUTIDE [Suspect]
     Active Substance: TEDUGLUTIDE
     Dosage: 2.4 MILLIGRAM, QD
     Route: 065
     Dates: start: 20201216, end: 20210922
  12. TEDUGLUTIDE [Suspect]
     Active Substance: TEDUGLUTIDE
     Dosage: 2.4 MILLIGRAM, QD
     Route: 065
     Dates: start: 20201216, end: 20210922
  13. TEDUGLUTIDE [Suspect]
     Active Substance: TEDUGLUTIDE
     Dosage: 2 MILLIGRAM, QD
     Route: 065
     Dates: start: 20210923
  14. TEDUGLUTIDE [Suspect]
     Active Substance: TEDUGLUTIDE
     Dosage: 2 MILLIGRAM, QD
     Route: 065
     Dates: start: 20210923
  15. TEDUGLUTIDE [Suspect]
     Active Substance: TEDUGLUTIDE
     Dosage: 2 MILLIGRAM, QD
     Route: 065
     Dates: start: 20210923
  16. TEDUGLUTIDE [Suspect]
     Active Substance: TEDUGLUTIDE
     Dosage: 2 MILLIGRAM, QD
     Route: 065
     Dates: start: 20210923
  17. Selenase [Concomitant]
     Indication: Selenium deficiency
     Dosage: 100 MICROGRAM, QOD
     Route: 048
     Dates: start: 20210608
  18. DIMETHICONE [Concomitant]
     Active Substance: DIMETHICONE
     Indication: Abdominal distension
     Dosage: 2 DOSAGE FORM
     Route: 060
     Dates: start: 202103
  19. PREDNISOLONE [Concomitant]
     Active Substance: PREDNISOLONE
     Indication: Rheumatic disorder
     Dosage: 5 MILLIGRAM, QD
     Route: 048
     Dates: start: 20210119
  20. METAMIZOLE [Concomitant]
     Active Substance: METAMIZOLE
     Indication: Rheumatic fever
     Dosage: 500 MILLIGRAM, TID
     Route: 048
     Dates: start: 20201221, end: 202101
  21. AMOXIL [Concomitant]
     Active Substance: AMOXICILLIN
     Indication: Angina pectoris
     Dosage: 750 MILLIGRAM, TID
     Route: 048
     Dates: start: 20211102

REACTIONS (3)
  - Vascular device infection [Recovered/Resolved]
  - Flatulence [Recovered/Resolved]
  - Tooth infection [Recovered/Resolved]

NARRATIVE: CASE EVENT DATE: 20210804
